FAERS Safety Report 7040531-1 (Version None)
Quarter: 2010Q4

REPORT INFORMATION
  Report Type: 
  Country: None (occurrence: None)
  Receive Date: 20101008
  Receipt Date: 20101008
  Transmission Date: 20110411
  Serious: No
  Sender: FDA-Public Use
  Company Number: None

PATIENT
  Age: 56 Year
  Sex: Male

DRUGS (3)
  1. OXACILLIN [Suspect]
     Indication: INTERVERTEBRAL DISCITIS
     Dosage: 2 GRAMS 9 4 IV
     Route: 042
     Dates: start: 20100604, end: 20100614
  2. OXACILLIN [Suspect]
     Indication: STAPHYLOCOCCAL INFECTION
     Dosage: 2 GRAMS 9 4 IV
     Route: 042
     Dates: start: 20100604, end: 20100614
  3. OXYCODONE HCL [Suspect]

REACTIONS (3)
  - ALANINE AMINOTRANSFERASE INCREASED [None]
  - ASPARTATE AMINOTRANSFERASE DECREASED [None]
  - RASH [None]
